FAERS Safety Report 7996767 (Version 2)
Quarter: 2012Q4

REPORT INFORMATION
  Report Type: 
  Country: CA (occurrence: CA)
  Receive Date: 20110617
  Receipt Date: 20121107
  Transmission Date: 20130627
  Serious: Yes (Hospitalization, Other)
  Sender: FDA-Public Use
  Company Number: PHMT2005CA00616

PATIENT
  Sex: Female

DRUGS (1)
  1. SANDOSTATIN LAR [Suspect]
     Indication: METASTATIC CARCINOID TUMOUR
     Dosage: 20 mg, QW4
     Dates: start: 20000220

REACTIONS (5)
  - Escherichia infection [Recovering/Resolving]
  - Blood pressure increased [Unknown]
  - Urinary tract infection [Unknown]
  - Cough [Unknown]
  - Diarrhoea [Unknown]
